FAERS Safety Report 9468835 (Version 1)
Quarter: 2013Q3

REPORT INFORMATION
  Report Type: Spontaneous
  Country: US (occurrence: US)
  Receive Date: 20130821
  Receipt Date: 20130821
  Transmission Date: 20140515
  Serious: No
  Sender: FDA-Public Use
  Company Number: US-TEVA-427391USA

PATIENT
  Age: 33 Year
  Sex: Male

DRUGS (3)
  1. NUVIGIL [Suspect]
     Dates: end: 20130101
  2. REMERON [Concomitant]
  3. ZYPREXA [Concomitant]

REACTIONS (1)
  - Drug ineffective [Unknown]
